FAERS Safety Report 10206797 (Version 1)
Quarter: 2014Q2

REPORT INFORMATION
  Report Type: Spontaneous
  Country: US (occurrence: None)
  Receive Date: 20140527
  Receipt Date: 20140527
  Transmission Date: 20141212
  Serious: Yes (Life-Threatening)
  Sender: FDA-Public Use
  Company Number: None

PATIENT
  Age: 51 Year
  Sex: Female
  Weight: 56.7 kg

DRUGS (1)
  1. DEFINITY [Suspect]
     Indication: ULTRASOUND SCAN
     Dosage: 1.5 ML/8.5 ML SALINE?INTRAVENOUS
     Route: 042
     Dates: start: 20140509

REACTIONS (12)
  - Cough [None]
  - Erythema [None]
  - Malaise [None]
  - Retching [None]
  - Pulse abnormal [None]
  - Heart rate decreased [None]
  - Blood pressure immeasurable [None]
  - Cardio-respiratory arrest [None]
  - Nausea [None]
  - Discomfort [None]
  - Electrocardiogram T wave amplitude decreased [None]
  - Sinus tachycardia [None]
